FAERS Safety Report 25417758 (Version 1)
Quarter: 2025Q2

REPORT INFORMATION
  Report Type: Spontaneous
  Country: LT (occurrence: LT)
  Receive Date: 20250610
  Receipt Date: 20250610
  Transmission Date: 20250717
  Serious: Yes (Hospitalization, Other)
  Sender: SANOFI AVENTIS
  Company Number: LT-DialogSolutions-SAAVPROD-PI779197-C2

PATIENT
  Age: 32 Year
  Sex: Female

DRUGS (17)
  1. FLUDARABINE PHOSPHATE [Suspect]
     Active Substance: FLUDARABINE PHOSPHATE
     Indication: Bone marrow conditioning regimen
     Dosage: 30 MG/M2, QD  (FROM DAYS -13 TO -9 BEFORE ALLOSCT)
  2. FLUDARABINE PHOSPHATE [Suspect]
     Active Substance: FLUDARABINE PHOSPHATE
     Indication: Acute myeloid leukaemia
  3. ANTI-THYMOCYTE GLOBULIN (RABBIT) NOS [Suspect]
     Active Substance: LAPINE T-LYMPHOCYTE IMMUNE GLOBULIN
     Indication: Lymphodepletion
     Dosage: 2.5 MG/KG, QD (ON DAYS -3 AND -2 BEFORE ALLOSCT)
  4. CYTARABINE [Concomitant]
     Active Substance: CYTARABINE
     Indication: Bone marrow conditioning regimen
     Dosage: 2000 MG/M2, QD (FROM DAYS -13 TO -9 BEFORE ALLOSCT)
  5. CYTARABINE [Concomitant]
     Active Substance: CYTARABINE
     Indication: Acute myeloid leukaemia
  6. GRANULOCYTE COLONY-STIMULATING FACTOR NOS [Concomitant]
     Active Substance: GRANULOCYTE COLONY-STIMULATING FACTOR NOS
     Indication: Bone marrow conditioning regimen
     Dosage: 5 UG/KG, QD (FROM DAYS -13 TO -9 BEFORE ALLOSCT)
  7. GRANULOCYTE COLONY-STIMULATING FACTOR NOS [Concomitant]
     Active Substance: GRANULOCYTE COLONY-STIMULATING FACTOR NOS
     Indication: Acute myeloid leukaemia
  8. VENETOCLAX [Concomitant]
     Active Substance: VENETOCLAX
     Indication: Bone marrow conditioning regimen
     Dosage: 400 MG, QD (ON DAYS -18 TO -8 BEFORE ALLO SCT)
  9. VENETOCLAX [Concomitant]
     Active Substance: VENETOCLAX
     Indication: Acute myeloid leukaemia
  10. IDARUBICIN [Concomitant]
     Active Substance: IDARUBICIN
     Indication: Bone marrow conditioning regimen
     Dosage: 8 MG/M2, QD (ON DAYS 8-10)
  11. IDARUBICIN [Concomitant]
     Active Substance: IDARUBICIN
     Indication: Acute myeloid leukaemia
  12. BUSULFAN [Concomitant]
     Active Substance: BUSULFAN
     Indication: Bone marrow conditioning regimen
     Dosage: UNK UNK, QD (ON DAYS -7 TO -4 BEFORE ALLOSCT)
  13. BUSULFAN [Concomitant]
     Active Substance: BUSULFAN
     Indication: Acute myeloid leukaemia
  14. CYCLOSPORINE [Concomitant]
     Active Substance: CYCLOSPORINE
     Indication: Prophylaxis against graft versus host disease
     Dosage: UNK UNK, QD (ON DAYS -3 TO UNTILLL +62)
  15. METHOTREXATE [Concomitant]
     Active Substance: METHOTREXATE
     Indication: Prophylaxis against graft versus host disease
  16. DECITABINE [Concomitant]
     Active Substance: DECITABINE
     Indication: Bone marrow conditioning regimen
     Dosage: 20 MG/M2, QD (ON DAYS -18 TO -14 BEFORE ALLOSCT)
  17. DECITABINE [Concomitant]
     Active Substance: DECITABINE
     Indication: Acute myeloid leukaemia

REACTIONS (4)
  - Myelosuppression [Recovered/Resolved]
  - Off label use [Recovered/Resolved]
  - Febrile neutropenia [Recovered/Resolved]
  - Mucosal inflammation [Recovered/Resolved]
